FAERS Safety Report 4447628-0 (Version None)
Quarter: 2004Q3

REPORT INFORMATION
  Report Type: 
  Country: None (occurrence: None)
  Receive Date: 20040823
  Receipt Date: 20040714
  Transmission Date: 20050211
  Serious: No
  Sender: FDA-Public Use
  Company Number: PHEH2004US07529

PATIENT
  Age: 74 Year
  Sex: Male

DRUGS (4)
  1. ZELNORM [Suspect]
     Indication: IRRITABLE BOWEL SYNDROME
     Dosage: 65 MG BID
     Dates: start: 20040712
  2. TEGRETOL [Concomitant]
  3. LOPRESSOR [Concomitant]
  4. MIRALAX [Concomitant]

REACTIONS (1)
  - AGITATION [None]
